FAERS Safety Report 17828407 (Version 1)
Quarter: 2020Q2

REPORT INFORMATION
  Report Type: Spontaneous
  Country: US (occurrence: US)
  Receive Date: 20200526
  Receipt Date: 20200526
  Transmission Date: 20200714
  Serious: No
  Sender: FDA-Public Use
  Company Number: None

PATIENT
  Age: 62 Year
  Sex: Male
  Weight: 92.99 kg

DRUGS (2)
  1. SILDENAFIL (GENERIC) [Suspect]
     Active Substance: SILDENAFIL
     Indication: ERECTILE DYSFUNCTION
     Dates: end: 2018
  2. TADALAFIL (GENERIC) [Suspect]
     Active Substance: TADALAFIL
     Indication: PROSTATE CANCER

REACTIONS (2)
  - Paraesthesia [None]
  - Muscle spasms [None]
